FAERS Safety Report 4641083-3 (Version None)
Quarter: 2005Q2

REPORT INFORMATION
  Report Type: 
  Country: None (occurrence: None)
  Receive Date: 20050324
  Receipt Date: 20050210
  Transmission Date: 20051028
  Serious: Yes (Other)
  Sender: FDA-Public Use
  Company Number: 211953

PATIENT
  Age: 65 Year
  Sex: Female
  Weight: 54.9 kg

DRUGS (9)
  1. AVASTIN [Suspect]
     Indication: COLORECTAL CANCER METASTATIC
     Dosage: SEE IMAGE
     Route: 042
     Dates: start: 20040419
  2. AVASTIN [Suspect]
     Indication: COLORECTAL CANCER METASTATIC
     Dosage: SEE IMAGE
     Route: 042
     Dates: start: 20041011
  3. ZOMETA [Concomitant]
  4. IRINOTECAN HCL [Concomitant]
  5. FLUOROURACIL [Concomitant]
  6. LEUCOVORIN CALCIUM [Concomitant]
  7. NORVASC [Concomitant]
  8. PERCOCET [Concomitant]
  9. PREVACID [Concomitant]

REACTIONS (1)
  - PULMONARY EMBOLISM [None]
